FAERS Safety Report 5339360-6 (Version None)
Quarter: 2007Q2

REPORT INFORMATION
  Report Type: 
  Country: None (occurrence: None)
  Receive Date: 20070525
  Receipt Date: 20070510
  Transmission Date: 20071010
  Serious: Yes (Hospitalization)
  Sender: FDA-Public Use
  Company Number: 2007JP001959

PATIENT
  Age: 79 Year
  Sex: Male
  Weight: 66.7 kg

DRUGS (4)
  1. VESICARE [Suspect]
     Indication: HYPERTONIC BLADDER
     Dosage: 5 MG, UID/QD, ORAL
     Route: 048
     Dates: start: 20070330, end: 20070424
  2. MICARDIS [Suspect]
     Indication: HYPERTENSION
     Dosage: 20 MG, UID/QD, ORAL
     Route: 048
     Dates: start: 20070320
  3. DOXAZOSIN MESYLATE [Concomitant]
  4. ASPIRIN [Concomitant]

REACTIONS (2)
  - BRADYCARDIA [None]
  - YAWNING [None]
